FAERS Safety Report 12659617 (Version 1)
Quarter: 2016Q3

REPORT INFORMATION
  Report Type: Spontaneous
  Country: US (occurrence: US)
  Receive Date: 20160817
  Receipt Date: 20160817
  Transmission Date: 20161109
  Serious: Yes (Hospitalization)
  Sender: FDA-Public Use
  Company Number: US-RARE DISEASE THERAPEUTICS, INC.-1056411

PATIENT
  Age: 75 Year
  Sex: Female
  Weight: 50.96 kg

DRUGS (18)
  1. CYSTADANE [Suspect]
     Active Substance: BETAINE
     Dates: start: 20160709
  2. FLOVENT [Concomitant]
     Active Substance: FLUTICASONE PROPIONATE
  3. FLUTICASONE [Concomitant]
     Active Substance: FLUTICASONE\FLUTICASONE PROPIONATE
  4. CETIRIZINE [Concomitant]
     Active Substance: CETIRIZINE HYDROCHLORIDE
  5. BROMELAIN [Concomitant]
     Active Substance: BROMELAINS
  6. MULTAQ [Concomitant]
     Active Substance: DRONEDARONE
  7. ALPHA LIPOIC ACID [Concomitant]
     Active Substance: .ALPHA.-LIPOIC ACID
  8. VALSARTAN. [Concomitant]
     Active Substance: VALSARTAN
  9. CARVEDILOL. [Concomitant]
     Active Substance: CARVEDILOL
  10. MONTELUKAST [Concomitant]
     Active Substance: MONTELUKAST SODIUM
  11. MULTIVITAMIN [Concomitant]
     Active Substance: VITAMINS
  12. OMEPRAZOLE. [Concomitant]
     Active Substance: OMEPRAZOLE
  13. CYSTADANE [Suspect]
     Active Substance: BETAINE
     Indication: METHYLENETETRAHYDROFOLATE REDUCTASE DEFICIENCY
     Dates: start: 20160407, end: 20160704
  14. METFORMIN [Concomitant]
     Active Substance: METFORMIN HYDROCHLORIDE
  15. METANX (CALCIUM MEFOLINATE, PYRIDOXINE HYDROCHLORID) [Concomitant]
  16. LEVOTHYROXINE. [Concomitant]
     Active Substance: LEVOTHYROXINE
  17. OMEGA-3 (SALMO SALAR OIL) [Concomitant]
  18. TUMERIC [Concomitant]
     Active Substance: TURMERIC

REACTIONS (2)
  - Gastrointestinal haemorrhage [Unknown]
  - Underdose [Unknown]

NARRATIVE: CASE EVENT DATE: 20160704
